FAERS Safety Report 15668260 (Version 3)
Quarter: 2021Q4

REPORT INFORMATION
  Report Type: Report from Study
  Country: US (occurrence: US)
  Receive Date: 20181129
  Receipt Date: 20211001
  Transmission Date: 20220303
  Serious: Yes (Death, Hospitalization, Other)
  Sender: FDA-Public Use
  Company Number: US-ACADIA PHARMACEUTICALS INC.-ACA-2018-010988

PATIENT
  Age: 77 Year
  Sex: Male

DRUGS (10)
  1. NUPLAZID [Suspect]
     Active Substance: PIMAVANSERIN TARTRATE
     Indication: Hallucination
     Dosage: 34 MG, QD
     Route: 048
     Dates: start: 2018
  2. NUPLAZID [Suspect]
     Active Substance: PIMAVANSERIN TARTRATE
     Indication: Delusion
     Dosage: 34 MG, QD
     Route: 048
     Dates: start: 20181213
  3. NUPLAZID [Suspect]
     Active Substance: PIMAVANSERIN TARTRATE
     Indication: Parkinson^s disease psychosis
  4. SEROQUEL [Concomitant]
     Active Substance: QUETIAPINE FUMARATE
  5. CARBIDOPA\LEVODOPA [Concomitant]
     Active Substance: CARBIDOPA\LEVODOPA
     Dosage: THREE DIFFERENT TYPES
  6. ESCITALOPRAM [Concomitant]
     Active Substance: ESCITALOPRAM OXALATE
  7. QUETIAPINE [Concomitant]
     Active Substance: QUETIAPINE
  8. MIDODRINE [Concomitant]
     Active Substance: MIDODRINE
  9. RIVASTIGMINE [Concomitant]
     Active Substance: RIVASTIGMINE
  10. FLUDROCORTISONE [Concomitant]
     Active Substance: FLUDROCORTISONE

REACTIONS (3)
  - Cerebrovascular accident [Recovered/Resolved]
  - Delusion [Recovering/Resolving]
  - Hallucination [Recovering/Resolving]

NARRATIVE: CASE EVENT DATE: 20181121
